FAERS Safety Report 4672976-9 (Version None)
Quarter: 2005Q2

REPORT INFORMATION
  Report Type: 
  Country: None (occurrence: None)
  Receive Date: 20050524
  Receipt Date: 20050309
  Transmission Date: 20051028
  Serious: Yes (Death)
  Sender: FDA-Public Use
  Company Number: 2005S1001107

PATIENT
  Age: 48 Year
  Sex: Male
  Weight: 85.7298 kg

DRUGS (7)
  1. CLOZAPINE [Suspect]
     Indication: SCHIZOPHRENIA, PARANOID TYPE
     Dosage: 400 MG HS PO
     Route: 048
     Dates: end: 20050129
  2. GLIMEPIRIDE [Concomitant]
  3. TRAZODONE [Concomitant]
  4. BENZATROPINE MESILATE [Concomitant]
  5. DOCUSATE SODIUM [Concomitant]
  6. SERTRALINE HCL [Concomitant]
  7. VALPROIC ACID [Concomitant]

REACTIONS (3)
  - DIABETES MELLITUS NON-INSULIN-DEPENDENT [None]
  - MYOCARDIAL INFARCTION [None]
  - RENAL FAILURE [None]
